FAERS Safety Report 14268498 (Version 1)
Quarter: 2017Q4

REPORT INFORMATION
  Report Type: Spontaneous
  Country: CN (occurrence: CN)
  Receive Date: 20171211
  Receipt Date: 20171211
  Transmission Date: 20180321
  Serious: Yes (Other)
  Sender: FDA-Public Use
  Company Number: CN-PFIZER INC-2017527234

PATIENT
  Age: 91 Year
  Sex: Male

DRUGS (3)
  1. CORDARONE [Suspect]
     Active Substance: AMIODARONE HYDROCHLORIDE
     Dosage: 0.1 G, DAILY
     Route: 048
  2. CORDARONE [Suspect]
     Active Substance: AMIODARONE HYDROCHLORIDE
     Indication: VENTRICULAR EXTRASYSTOLES
     Dosage: 0.2 G, DAILY
     Route: 048
     Dates: start: 20170907, end: 20170918
  3. BETALOC [Suspect]
     Active Substance: METOPROLOL TARTRATE
     Indication: TACHYCARDIA
     Dosage: 47.5 MG, 2X/DAY
     Route: 048
     Dates: start: 20170826, end: 20170926

REACTIONS (1)
  - Electrocardiogram PR prolongation [Recovering/Resolving]

NARRATIVE: CASE EVENT DATE: 20170918
